FAERS Safety Report 24714597 (Version 1)
Quarter: 2024Q4

REPORT INFORMATION
  Report Type: Spontaneous
  Country: US (occurrence: US)
  Receive Date: 20241209
  Receipt Date: 20241209
  Transmission Date: 20250115
  Serious: No
  Sender: RANBAXY
  Company Number: US-SUN PHARMACEUTICAL INDUSTRIES LTD-2024R1-465654

PATIENT
  Sex: Female

DRUGS (3)
  1. PHENOBARBITAL [Interacting]
     Active Substance: PHENOBARBITAL
     Indication: Seizure
     Dosage: UNK
     Route: 065
  2. QULIPTA [Suspect]
     Active Substance: ATOGEPANT
     Indication: Seizure
     Dosage: UNK
     Route: 065
  3. IBRANCE [Suspect]
     Active Substance: PALBOCICLIB
     Indication: Product used for unknown indication
     Dosage: 125 MILLIGRAM, EVERY 3 DAYS, 1WK OFF
     Route: 065
     Dates: start: 20240715

REACTIONS (1)
  - Drug interaction [Unknown]
